FAERS Safety Report 5963745-8 (Version None)
Quarter: 2008Q4

REPORT INFORMATION
  Report Type: 
  Country: None (occurrence: None)
  Receive Date: 20081124
  Receipt Date: 20081113
  Transmission Date: 20090506
  Serious: Yes (Death)
  Sender: FDA-Public Use
  Company Number: US-BAXTER-2008BH012490

PATIENT
  Age: 91 Year
  Sex: Male

DRUGS (3)
  1. HEPARIN SODIUM INJECTION [Suspect]
     Indication: DRUG USE FOR UNKNOWN INDICATION
     Route: 065
     Dates: start: 20080201
  2. BLOOD PRESSURE MEDICATION [Concomitant]
     Indication: HYPERTENSION
     Route: 065
  3. TOPROL-XL [Concomitant]
     Indication: HYPERTENSION
     Route: 065

REACTIONS (7)
  - DEATH [None]
  - DECREASED APPETITE [None]
  - MALAISE [None]
  - NAUSEA [None]
  - PALLOR [None]
  - SWELLING FACE [None]
  - VOMITING [None]
